FAERS Safety Report 26117404 (Version 1)
Quarter: 2025Q4

REPORT INFORMATION
  Report Type: Spontaneous
  Country: US (occurrence: None)
  Receive Date: 20251203
  Receipt Date: 20251203
  Transmission Date: 20260119
  Serious: Yes (Other)
  Sender: FDA-CTU
  Company Number: None

PATIENT
  Sex: Female

DRUGS (9)
  1. REVLIMID [Suspect]
     Active Substance: LENALIDOMIDE
     Indication: Plasma cell myeloma
     Dosage: TAKE 1 CAPSULE BY MOUTH DAILY FOR 14 DAYS THEN 7 DAYS OFF?
     Route: 048
     Dates: start: 20250725
  2. ACETAMINOPHEN [Concomitant]
     Active Substance: ACETAMINOPHEN
  3. BIO-IMMUNEX [Concomitant]
  4. IRON [Concomitant]
     Active Substance: IRON
  5. LOMOTIL [Concomitant]
     Active Substance: ATROPINE SULFATE\DIPHENOXYLATE HYDROCHLORIDE
  6. POT CHLORIDE TAB [Concomitant]
  7. MINERALS\VITAMINS [Concomitant]
     Active Substance: MINERALS\VITAMINS
  8. TRAMADOL HCL [Concomitant]
     Active Substance: TRAMADOL HYDROCHLORIDE
  9. TRAZODONE [Concomitant]
     Active Substance: TRAZODONE HYDROCHLORIDE

REACTIONS (1)
  - Knee arthroplasty [None]
